FAERS Safety Report 17028136 (Version 1)
Quarter: 2019Q4

REPORT INFORMATION
  Report Type: Report from Study
  Country: IT (occurrence: IT)
  Receive Date: 20191113
  Receipt Date: 20191113
  Transmission Date: 20200122
  Serious: Yes (Hospitalization)
  Sender: FDA-Public Use
  Company Number: IT-MYLANLABS-2019M1109215

PATIENT
  Sex: Female

DRUGS (2)
  1. DOXORUBICIN [Suspect]
     Active Substance: DOXORUBICIN
     Indication: MALIGNANT PERITONEAL NEOPLASM
     Dosage: 15 MG/L OF PERFUSATE..
     Route: 033
  2. CISPLATIN. [Suspect]
     Active Substance: CISPLATIN
     Indication: MALIGNANT PERITONEAL NEOPLASM
     Dosage: 43 MG/L OF PERFUS..
     Route: 033

REACTIONS (3)
  - Respiratory distress [Unknown]
  - Neutropenia [Unknown]
  - Shock [Unknown]
